FAERS Safety Report 17999551 (Version 1)
Quarter: 2020Q3

REPORT INFORMATION
  Report Type: Spontaneous
  Country: NL (occurrence: NL)
  Receive Date: 20200709
  Receipt Date: 20200709
  Transmission Date: 20201103
  Serious: Yes (Other)
  Sender: FDA-Public Use
  Company Number: NL-TEVA-2020-NL-1798066

PATIENT
  Sex: Female

DRUGS (1)
  1. PREDNISOLON RP 5 MG (ROZE) [Suspect]
     Active Substance: PREDNISOLONE
     Dosage: PINK
     Route: 065

REACTIONS (3)
  - Tongue erythema [Unknown]
  - Swollen tongue [Unknown]
  - Product substitution issue [Unknown]

NARRATIVE: CASE EVENT DATE: 2020
